FAERS Safety Report 22360747 (Version 1)
Quarter: 2023Q2

REPORT INFORMATION
  Report Type: Spontaneous
  Country: US (occurrence: US)
  Receive Date: 20230524
  Receipt Date: 20230524
  Transmission Date: 20230721
  Serious: No
  Sender: FDA-Public Use
  Company Number: US-drreddys-SPO/USA/23/0164472

PATIENT
  Sex: Female

DRUGS (1)
  1. ERRIN [Suspect]
     Active Substance: NORETHINDRONE
     Indication: Product used for unknown indication

REACTIONS (3)
  - Malaise [Unknown]
  - Coeliac disease [Unknown]
  - Muscle spasms [Unknown]
